FAERS Safety Report 18753400 (Version 3)
Quarter: 2022Q2

REPORT INFORMATION
  Report Type: Spontaneous
  Country: US (occurrence: US)
  Receive Date: 20210118
  Receipt Date: 20220505
  Transmission Date: 20220721
  Serious: No
  Sender: FDA-Public Use
  Company Number: US-THERATECHNOLOGIES EUROPE LIMITED-2021-THE-IBA-000012

PATIENT
  Age: 46 Year
  Sex: Female

DRUGS (11)
  1. TROGARZO [Suspect]
     Active Substance: IBALIZUMAB-UIYK
     Indication: HIV infection
     Dosage: UNK
     Route: 042
     Dates: start: 202003, end: 202101
  2. TROGARZO [Suspect]
     Active Substance: IBALIZUMAB-UIYK
     Dosage: UNK
     Dates: start: 20210113
  3. PREZISTA [Concomitant]
     Active Substance: DARUNAVIR ETHANOLATE
     Indication: Acquired immunodeficiency syndrome
     Dosage: 600 MG
     Route: 048
     Dates: start: 2014
  4. PREZISTA [Concomitant]
     Active Substance: DARUNAVIR ETHANOLATE
     Indication: Antiretroviral therapy
  5. NORVIR [Concomitant]
     Active Substance: RITONAVIR
     Indication: Acquired immunodeficiency syndrome
     Dosage: 100 MG
     Route: 048
     Dates: start: 2014
  6. NORVIR [Concomitant]
     Active Substance: RITONAVIR
     Indication: Antiretroviral therapy
  7. DESCOVY [Concomitant]
     Active Substance: EMTRICITABINE\TENOFOVIR ALAFENAMIDE FUMARATE
     Indication: Acquired immunodeficiency syndrome
     Dosage: 200/25
     Route: 048
     Dates: start: 2014
  8. DESCOVY [Concomitant]
     Active Substance: EMTRICITABINE\TENOFOVIR ALAFENAMIDE FUMARATE
     Indication: Antiretroviral therapy
  9. LISINOPRIL [Concomitant]
     Active Substance: LISINOPRIL
     Indication: Hypertension
     Dosage: 5 MG, QD
  10. ATORVASTATIN [Concomitant]
     Active Substance: ATORVASTATIN
     Indication: Blood cholesterol
     Dosage: 40 MG
  11. TYLENOL                            /00020001/ [Concomitant]
     Indication: Pain
     Dosage: UNK, PRN

REACTIONS (9)
  - Oedema peripheral [Recovered/Resolved]
  - Paraesthesia [Recovering/Resolving]
  - Pain in extremity [Recovered/Resolved]
  - Muscular weakness [Recovering/Resolving]
  - Pyrexia [Unknown]
  - Joint stiffness [Unknown]
  - Inflammation [Recovering/Resolving]
  - Product dose omission issue [Recovered/Resolved]
  - Inappropriate schedule of product administration [Unknown]

NARRATIVE: CASE EVENT DATE: 20201201
